FAERS Safety Report 9110719 (Version 1)
Quarter: 2013Q1

REPORT INFORMATION
  Report Type: Spontaneous
  Country: US (occurrence: US)
  Receive Date: 20130219
  Receipt Date: 20130219
  Transmission Date: 20140127
  Serious: No
  Sender: FDA-Public Use
  Company Number: US-BRISTOL-MYERS SQUIBB COMPANY-17201856

PATIENT
  Age: 73 Year
  Sex: Male

DRUGS (9)
  1. ABATACEPT SUBQ INJECTION 125MG/ML [Suspect]
     Indication: RHEUMATOID ARTHRITIS
     Route: 058
     Dates: start: 20121203
  2. FOLIC ACID [Concomitant]
  3. FISH OIL [Concomitant]
  4. LEVOTHYROXIN [Concomitant]
  5. METHOTREXATE [Concomitant]
  6. MULTIVITAMIN [Concomitant]
  7. NEXIUM [Concomitant]
  8. VITAMIN D [Concomitant]
  9. WELCHOL [Concomitant]

REACTIONS (1)
  - Pain [Unknown]
